FAERS Safety Report 19775813 (Version 7)
Quarter: 2023Q4

REPORT INFORMATION
  Report Type: Spontaneous
  Country: JP (occurrence: JP)
  Receive Date: 20210901
  Receipt Date: 20231020
  Transmission Date: 20240109
  Serious: Yes (Death, Hospitalization)
  Sender: FDA-Public Use
  Company Number: JP-ELI_LILLY_AND_COMPANY-JP202108012165

PATIENT
  Age: 13 Year
  Sex: Female
  Weight: 30.7 kg

DRUGS (32)
  1. ADCIRCA [Suspect]
     Active Substance: TADALAFIL
     Indication: Pulmonary arterial hypertension
     Dosage: 33 MG, DAILY
     Route: 048
     Dates: start: 20170406, end: 20191004
  2. ADCIRCA [Suspect]
     Active Substance: TADALAFIL
     Dosage: 33 MG, DAILY
     Route: 048
     Dates: start: 20191006
  3. UPTRAVI [Suspect]
     Active Substance: SELEXIPAG
     Indication: Pulmonary arterial hypertension
     Dosage: 0.12 MG, BID
     Route: 048
     Dates: start: 20180301, end: 20180405
  4. UPTRAVI [Suspect]
     Active Substance: SELEXIPAG
     Dosage: 0.24 MG, BID
     Route: 048
     Dates: start: 20180406, end: 20180510
  5. UPTRAVI [Suspect]
     Active Substance: SELEXIPAG
     Dosage: 0.36 MG, BID
     Route: 048
     Dates: start: 20180511, end: 20180612
  6. UPTRAVI [Suspect]
     Active Substance: SELEXIPAG
     Dosage: 0.48 MG, BID
     Route: 048
     Dates: start: 20180613, end: 20180712
  7. UPTRAVI [Suspect]
     Active Substance: SELEXIPAG
     Dosage: 0.6 MG, BID
     Route: 048
     Dates: start: 20180713, end: 20180913
  8. UPTRAVI [Suspect]
     Active Substance: SELEXIPAG
     Dosage: 0.12 MG, BID
     Route: 048
     Dates: start: 20190409, end: 20190516
  9. UPTRAVI [Suspect]
     Active Substance: SELEXIPAG
     Dosage: 0.24 MG, BID
     Route: 048
     Dates: start: 20180517, end: 20190613
  10. UPTRAVI [Suspect]
     Active Substance: SELEXIPAG
     Dosage: 0.36 MG, BID
     Route: 048
     Dates: start: 20190614, end: 20190718
  11. UPTRAVI [Suspect]
     Active Substance: SELEXIPAG
     Dosage: 0.48 MG, BID
     Route: 048
     Dates: start: 20190719, end: 20190808
  12. UPTRAVI [Suspect]
     Active Substance: SELEXIPAG
     Dosage: 0.6 MG, BID
     Route: 048
     Dates: start: 20190809, end: 20190912
  13. UPTRAVI [Suspect]
     Active Substance: SELEXIPAG
     Dosage: 0.72 MG, BID
     Route: 048
     Dates: start: 20190913, end: 20200618
  14. UPTRAVI [Suspect]
     Active Substance: SELEXIPAG
     Dosage: 0.84 MG, BID
     Route: 048
     Dates: start: 20200619, end: 20200903
  15. UPTRAVI [Suspect]
     Active Substance: SELEXIPAG
     Dosage: 0.96 MG, BID
     Route: 048
     Dates: start: 20200904, end: 20210602
  16. OPSUMIT [Concomitant]
     Active Substance: MACITENTAN
     Indication: Pulmonary arterial hypertension
     Dosage: 6.6 MG, DAILY
     Route: 048
     Dates: start: 20170406, end: 20201105
  17. OPSUMIT [Concomitant]
     Active Substance: MACITENTAN
     Dosage: 3.3 MG, DAILY
     Route: 048
     Dates: start: 20201106
  18. WARFARIN [Concomitant]
     Active Substance: WARFARIN
     Indication: Product used for unknown indication
     Dosage: 3 MG, DAILY
     Route: 048
     Dates: start: 20170812, end: 20180628
  19. WARFARIN [Concomitant]
     Active Substance: WARFARIN
     Dosage: 3 MG, DAILY
     Route: 048
     Dates: start: 20180630, end: 20180704
  20. WARFARIN [Concomitant]
     Active Substance: WARFARIN
     Dosage: 3 MG, DAILY
     Route: 048
     Dates: start: 20180706, end: 20180913
  21. SAMSCA [Concomitant]
     Active Substance: TOLVAPTAN
     Indication: Product used for unknown indication
     Dosage: 10 MG, DAILY
     Route: 048
     Dates: start: 20180213, end: 20191003
  22. SAMSCA [Concomitant]
     Active Substance: TOLVAPTAN
     Dosage: 5?10MG/DAY
     Route: 048
     Dates: start: 20191007
  23. FUROSEMIDE [Concomitant]
     Active Substance: FUROSEMIDE
     Indication: Product used for unknown indication
     Dosage: 75 MG, DAILY
     Route: 048
     Dates: start: 20150421, end: 20191003
  24. FUROSEMIDE [Concomitant]
     Active Substance: FUROSEMIDE
     Dosage: 75 MG, DAILY
     Route: 048
     Dates: start: 20191007
  25. SPIRONOLACTONE [Concomitant]
     Active Substance: SPIRONOLACTONE
     Indication: Product used for unknown indication
     Dosage: 75 MG, DAILY
     Route: 048
     Dates: start: 20150421, end: 20191003
  26. SPIRONOLACTONE [Concomitant]
     Active Substance: SPIRONOLACTONE
     Dosage: 75 MG, DAILY
     Route: 048
     Dates: start: 20191007
  27. ENALAPRIL MALEATE [Concomitant]
     Active Substance: ENALAPRIL MALEATE
     Indication: Product used for unknown indication
     Dosage: 6.6 MG, DAILY
     Route: 048
     Dates: start: 20170406, end: 20191004
  28. ENALAPRIL MALEATE [Concomitant]
     Active Substance: ENALAPRIL MALEATE
     Dosage: 6?6.6MG/DAY
     Route: 048
     Dates: start: 20191011, end: 20201105
  29. ASPIRIN [Concomitant]
     Active Substance: ASPIRIN
     Indication: Product used for unknown indication
     Dosage: 165 MG, DAILY
     Route: 048
     Dates: start: 20170407
  30. WARFARIN POTASSIUM [Concomitant]
     Active Substance: WARFARIN POTASSIUM
     Indication: Product used for unknown indication
     Dosage: 2.9 MG, DAILY
     Route: 048
     Dates: start: 20180914, end: 20191004
  31. WARFARIN POTASSIUM [Concomitant]
     Active Substance: WARFARIN POTASSIUM
     Dosage: 2.9 MG, DAILY
     Route: 048
     Dates: start: 20191007
  32. ENALAPRIL MALEATE [Concomitant]
     Active Substance: ENALAPRIL MALEATE
     Indication: Product used for unknown indication
     Dosage: 3.3 MG, DAILY
     Route: 048
     Dates: start: 20201106

REACTIONS (20)
  - Circulatory collapse [Fatal]
  - Thyroiditis [Not Recovered/Not Resolved]
  - Respiratory failure [Not Recovered/Not Resolved]
  - Renal impairment [Not Recovered/Not Resolved]
  - Pleural effusion [Not Recovered/Not Resolved]
  - Infection [Not Recovered/Not Resolved]
  - Sepsis [Not Recovered/Not Resolved]
  - Haemorrhage [Not Recovered/Not Resolved]
  - Tachypnoea [Not Recovered/Not Resolved]
  - Oedema [Not Recovered/Not Resolved]
  - Cardiac failure [Not Recovered/Not Resolved]
  - Pyrexia [Not Recovered/Not Resolved]
  - Headache [Recovered/Resolved]
  - Diarrhoea [Recovered/Resolved]
  - Vomiting [Recovered/Resolved]
  - Pertussis [Recovered/Resolved]
  - Platelet count decreased [Recovering/Resolving]
  - Hyperthyroidism [Recovered/Resolved]
  - Brain natriuretic peptide increased [Recovering/Resolving]
  - Hypotension [Recovered/Resolved]

NARRATIVE: CASE EVENT DATE: 20180612
